FAERS Safety Report 5469526-6 (Version None)
Quarter: 2007Q3

REPORT INFORMATION
  Report Type: 
  Country: None (occurrence: None)
  Receive Date: 20070927
  Receipt Date: 20070921
  Transmission Date: 20080115
  Serious: Yes (Death)
  Sender: FDA-Public Use
  Company Number: B0481956A

PATIENT
  Age: 75 Year
  Sex: Female

DRUGS (7)
  1. VALTREX [Suspect]
     Indication: HERPES ZOSTER
     Dosage: 1000MG THREE TIMES PER DAY
     Route: 048
     Dates: start: 20070709, end: 20070715
  2. CELESTAMINE TAB [Suspect]
     Indication: DRUG USE FOR UNKNOWN INDICATION
     Route: 048
  3. ALLEGRA [Suspect]
     Indication: DRUG USE FOR UNKNOWN INDICATION
     Route: 048
  4. ERYTHROCIN [Concomitant]
     Dosage: 600MG PER DAY
     Route: 048
     Dates: start: 20070707
  5. UNKNOWN MEDICATION [Concomitant]
     Indication: PARKINSONISM
     Dosage: 150MG PER DAY
     Route: 048
     Dates: start: 20070705
  6. MEROPEN [Concomitant]
     Dosage: .5G TWICE PER DAY
     Dates: start: 20070713
  7. GRAN [Concomitant]
     Dosage: 75MCG PER DAY
     Dates: start: 20070715

REACTIONS (6)
  - CARDIAC FAILURE [None]
  - INTUBATION [None]
  - MECHANICAL VENTILATION [None]
  - PNEUMONIA [None]
  - PYREXIA [None]
  - WHITE BLOOD CELL COUNT DECREASED [None]
